FAERS Safety Report 18551717 (Version 1)
Quarter: 2020Q4

REPORT INFORMATION
  Report Type: Spontaneous
  Country: US (occurrence: US)
  Receive Date: 20201126
  Receipt Date: 20201126
  Transmission Date: 20210114
  Serious: Yes (Death, Other)
  Sender: FDA-Public Use
  Company Number: US-PURDUE-USA-2020-0179757

PATIENT
  Sex: Male

DRUGS (1)
  1. OXYCONTIN [Suspect]
     Active Substance: OXYCODONE HYDROCHLORIDE
     Indication: BACK PAIN
     Dosage: 80 MG, MONTHLY
     Route: 048

REACTIONS (14)
  - Dependence [Unknown]
  - Insomnia [Unknown]
  - Hypopnoea [Unknown]
  - Depression [Unknown]
  - Apathy [Unknown]
  - Confusional state [Unknown]
  - Nausea [Unknown]
  - Gun shot wound [Fatal]
  - Weight decreased [Unknown]
  - Abnormal behaviour [Unknown]
  - Fatigue [Unknown]
  - Decreased appetite [Unknown]
  - Constipation [Unknown]
  - Pulse abnormal [Unknown]
